FAERS Safety Report 23365505 (Version 1)
Quarter: 2024Q1

REPORT INFORMATION
  Report Type: Spontaneous
  Country: US (occurrence: US)
  Receive Date: 20240104
  Receipt Date: 20240104
  Transmission Date: 20240410
  Serious: Yes (Other)
  Sender: FDA-Public Use
  Company Number: US-AMNEAL PHARMACEUTICALS-2023-AMRX-02556

PATIENT
  Age: 46 Year
  Sex: Female

DRUGS (14)
  1. ACTIVELLA [Suspect]
     Active Substance: ESTRADIOL\NORETHINDRONE ACETATE
     Indication: Uterine leiomyoma
     Dosage: 1.0MG /0.5MG, EVERY 1 DAYS
     Route: 048
     Dates: start: 20190506, end: 20200410
  2. ACTIVELLA [Suspect]
     Active Substance: ESTRADIOL\NORETHINDRONE ACETATE
     Dosage: 1.0MG /0.5MG, EVERY 1 DAYS
     Route: 048
     Dates: start: 20200410, end: 20230105
  3. ELAGOLIX [Suspect]
     Active Substance: ELAGOLIX
     Indication: Uterine leiomyoma
     Dosage: 300 MG PM DOSE, EVERY 1 DAYS
     Route: 048
     Dates: start: 20190506, end: 20200410
  4. ELAGOLIX [Suspect]
     Active Substance: ELAGOLIX
     Dosage: 300 MG PM DOSE, EVERY 1 DAYS
     Route: 048
     Dates: start: 20200410, end: 20230105
  5. ALBUTEROL [Concomitant]
     Active Substance: ALBUTEROL
     Indication: Asthma
     Dosage: AS NECESSARY
     Route: 065
     Dates: start: 1994
  6. VITAMINS [Concomitant]
     Active Substance: VITAMINS
     Indication: Vitamin supplementation
     Dosage: EVERY 1 DAYSUNK
     Route: 065
     Dates: start: 2010
  7. GLICLAZIDE [Concomitant]
     Active Substance: GLICLAZIDE
     Indication: Asthma
     Dosage: 10 MG, EVERY 1 DAYS
     Route: 065
     Dates: start: 20200301
  8. GLICLAZIDE [Concomitant]
     Active Substance: GLICLAZIDE
     Indication: Allergic cough
  9. COLLAGEN [ASCORBIC ACID;COLLAGEN] [Concomitant]
     Indication: Supplementation therapy
     Dosage: EVERY 1 DAYS
     Route: 065
     Dates: start: 20220401
  10. FERROUS SULFATE [Concomitant]
     Active Substance: FERROUS SULFATE
     Indication: Haemoglobin decreased
     Dosage: 325 MG, 2/DAYS
     Route: 065
  11. FERROUS SULFATE [Concomitant]
     Active Substance: FERROUS SULFATE
     Dosage: 325 MG, EVERY 2 DAYS
     Route: 065
     Dates: start: 20230511
  12. VITAMIN D3 [Concomitant]
     Active Substance: CHOLECALCIFEROL
     Indication: Prophylaxis
     Dosage: 125 MCG, EVERY 1 DAYS
     Route: 065
     Dates: start: 20230330
  13. LYSTEDA [Concomitant]
     Active Substance: TRANEXAMIC ACID
     Indication: Vaginal haemorrhage
     Dosage: (TID PRN, NO MORE THAN 4 DAYS (IN A ROW)
     Route: 065
     Dates: start: 20230511
  14. BIOTIN [Concomitant]
     Active Substance: BIOTIN
     Indication: Vitamin supplementation
     Dosage: 500 MG, EVERY 1 DAYS
     Route: 065
     Dates: end: 20191210

REACTIONS (2)
  - Foot fracture [Recovered/Resolved]
  - Fall [Unknown]

NARRATIVE: CASE EVENT DATE: 20230530
